FAERS Safety Report 15034663 (Version 1)
Quarter: 2018Q2

REPORT INFORMATION
  Report Type: Spontaneous
  Country: US (occurrence: US)
  Receive Date: 20180620
  Receipt Date: 20180620
  Transmission Date: 20180711
  Serious: No
  Sender: FDA-Public Use
  Company Number: US-ASTRAZENECA-2018SE76558

PATIENT
  Age: 66 Year
  Sex: Female
  Weight: 51.3 kg

DRUGS (3)
  1. ADVAIR HFA [Concomitant]
     Active Substance: FLUTICASONE PROPIONATE\SALMETEROL XINAFOATE
     Dosage: 115.0MG UNKNOWN
     Route: 065
  2. FASENRA [Suspect]
     Active Substance: BENRALIZUMAB
     Indication: EOSINOPHIL COUNT INCREASED
     Dosage: EVERY 4 WEEKS FOR 3 DOSES, THEN EVERY 8 WEEKS AFTER
     Route: 058
     Dates: start: 20180502
  3. SINGULAIR [Concomitant]
     Active Substance: MONTELUKAST SODIUM
     Dosage: 10.0MG UNKNOWN
     Route: 065

REACTIONS (3)
  - Product use in unapproved indication [Unknown]
  - Fractional exhaled nitric oxide abnormal [Unknown]
  - Off label use [Unknown]

NARRATIVE: CASE EVENT DATE: 2018
